FAERS Safety Report 8962410 (Version 1)
Quarter: 2012Q4

REPORT INFORMATION
  Report Type: Spontaneous
  Country: US (occurrence: None)
  Receive Date: 20121214
  Receipt Date: 20121214
  Transmission Date: 20130627
  Serious: No
  Sender: FDA-Public Use
  Company Number: None

PATIENT
  Age: 73 Year
  Sex: Male
  Weight: 80.9 kg

DRUGS (2)
  1. MITOMYCIN [Suspect]
     Indication: GLAUCOMA
     Dosage: 1 ml/0.2 mg intraop pledgets soaked in med
     Dates: start: 20120806
  2. MITOMYCIN [Suspect]
     Indication: TRABECULECTOMY
     Dosage: 1 ml/0.2 mg intraop pledgets soaked in med
     Dates: start: 20120806

REACTIONS (2)
  - Product quality issue [None]
  - Endophthalmitis [None]
